FAERS Safety Report 12854405 (Version 2)
Quarter: 2016Q4

REPORT INFORMATION
  Report Type: Spontaneous
  Country: US (occurrence: US)
  Receive Date: 20161017
  Receipt Date: 20161208
  Transmission Date: 20170207
  Serious: No
  Sender: FDA-Public Use
  Company Number: US-PFIZER INC-2016480001

PATIENT
  Age: 48 Year
  Sex: Female

DRUGS (3)
  1. LYRICA [Suspect]
     Active Substance: PREGABALIN
     Indication: NEURALGIA
     Dosage: 75 MG, 1X/DAY, AT BEDTIME
     Route: 048
     Dates: start: 20160930
  2. SYNTHROID [Concomitant]
     Active Substance: LEVOTHYROXINE SODIUM
     Indication: THYROID DISORDER
     Dosage: UNK
  3. DILAUDID [Concomitant]
     Active Substance: HYDROMORPHONE HYDROCHLORIDE
     Indication: PAIN
     Dosage: HAS BEEN DECREASING TO TAKING ONE TO NO TIMES DAILY

REACTIONS (2)
  - Therapeutic response unexpected [Unknown]
  - Pre-existing condition improved [Unknown]

NARRATIVE: CASE EVENT DATE: 2016
